FAERS Safety Report 11506607 (Version 2)
Quarter: 2016Q1

REPORT INFORMATION
  Report Type: Spontaneous
  Country: US (occurrence: US)
  Receive Date: 20150915
  Receipt Date: 20160119
  Transmission Date: 20160525
  Serious: Yes (Hospitalization)
  Sender: FDA-Public Use
  Company Number: US-PFIZER INC-2015291912

PATIENT
  Age: 77 Year
  Sex: Female

DRUGS (2)
  1. IBRANCE [Suspect]
     Active Substance: PALBOCICLIB
     Dosage: 100 MG, UNK
     Dates: start: 20150730
  2. LETROZOLE. [Suspect]
     Active Substance: LETROZOLE
     Dosage: UNK

REACTIONS (7)
  - Asthenia [Unknown]
  - Hernia [Unknown]
  - Neck pain [Unknown]
  - Neuropathy peripheral [Unknown]
  - Constipation [Unknown]
  - Musculoskeletal pain [Unknown]
  - Skin lesion [Unknown]

NARRATIVE: CASE EVENT DATE: 20150821
